FAERS Safety Report 9031855 (Version 2)
Quarter: 2013Q2

REPORT INFORMATION
  Report Type: Spontaneous
  Country: CA (occurrence: CA)
  Receive Date: 20130124
  Receipt Date: 20130416
  Transmission Date: 20140414
  Serious: Yes (Hospitalization)
  Sender: FDA-Public Use
  Company Number: CA-ELI_LILLY_AND_COMPANY-CA201301004040

PATIENT
  Age: 93 Year
  Sex: Female

DRUGS (9)
  1. FORTEO [Suspect]
     Indication: OSTEOPOROSIS
     Dosage: 20MCG, DAILY
     Route: 058
     Dates: start: 20120820, end: 20121117
  2. FORTEO [Suspect]
     Dosage: 20 UG, QD
     Dates: start: 20130129
  3. ROCALTROL [Concomitant]
  4. CARBOCAL [Concomitant]
  5. SEREVENT [Concomitant]
  6. FLOVENT [Concomitant]
  7. SPIRIVA [Concomitant]
  8. SYNTHROID [Concomitant]
  9. NASONEX [Concomitant]

REACTIONS (2)
  - Dizziness [Unknown]
  - Blood sodium decreased [Unknown]
